FAERS Safety Report 5242810-7 (Version None)
Quarter: 2007Q1

REPORT INFORMATION
  Report Type: 
  Country: None (occurrence: None)
  Receive Date: 20070215
  Receipt Date: 20070202
  Transmission Date: 20070707
  Serious: Yes (Death)
  Sender: FDA-Public Use
  Company Number: B0457957A

PATIENT
  Age: 54 Year
  Sex: Male

DRUGS (3)
  1. LITHIUM SALT (FORMULATION UNKNOWN) (LITHIUM SALT) [Suspect]
  2. NEUROLEPTIC [Concomitant]
  3. MOOD MEDICATION [Concomitant]

REACTIONS (8)
  - BLOOD CREATINE INCREASED [None]
  - COMPLETED SUICIDE [None]
  - HYPOMANIA [None]
  - INJURY ASPHYXIATION [None]
  - MAJOR DEPRESSION [None]
  - MANIA [None]
  - OVERDOSE [None]
  - TREMOR [None]
